FAERS Safety Report 19441965 (Version 1)
Quarter: 2021Q2

REPORT INFORMATION
  Report Type: Spontaneous
  Country: US (occurrence: US)
  Receive Date: 20210618
  Receipt Date: 20210618
  Transmission Date: 20210717
  Serious: No
  Sender: FDA-Public Use
  Company Number: None

PATIENT
  Age: 43 Year
  Sex: Female
  Weight: 96.75 kg

DRUGS (2)
  1. NEUTROGENA PURE AND FREE BABY SUNSCREEN BROAD SPECTRUM SPF 50 [Suspect]
     Active Substance: ZINC OXIDE
     Indication: PHOTOSENSITIVITY REACTION
     Route: 061
     Dates: start: 20210611, end: 20210617
  2. EUCRISA [Concomitant]
     Active Substance: CRISABOROLE

REACTIONS (8)
  - Rash erythematous [None]
  - Eczema [None]
  - Pruritus [None]
  - Photosensitivity reaction [None]
  - Feeling hot [None]
  - Skin exfoliation [None]
  - Chills [None]
  - Product quality issue [None]

NARRATIVE: CASE EVENT DATE: 20210617
